FAERS Safety Report 9769383 (Version 1)
Quarter: 2013Q4

REPORT INFORMATION
  Report Type: Spontaneous
  Country: US (occurrence: None)
  Receive Date: 20131217
  Receipt Date: 20131217
  Transmission Date: 20140711
  Serious: Yes (Disabling)
  Sender: FDA-Public Use
  Company Number: None

PATIENT
  Age: 64 Year
  Sex: Female

DRUGS (15)
  1. PROLIA [Suspect]
     Dates: start: 20120131, end: 20130207
  2. ALDACTONE [Concomitant]
  3. SIMVASTATIN [Concomitant]
  4. PROLIA [Suspect]
     Dates: end: 20130207
  5. ASPIRIN [Concomitant]
  6. CALCIUM [Concomitant]
  7. CHROMIUM PICOLINATE [Concomitant]
  8. FISH OIL [Concomitant]
  9. FOLIC ACID [Concomitant]
  10. L-LYSINE [Concomitant]
  11. MAGNESIUM [Concomitant]
  12. VITAMIN C [Concomitant]
  13. VITAMIN D3 [Concomitant]
  14. VITAMIN E [Concomitant]
  15. ZYRTEC [Concomitant]

REACTIONS (6)
  - Chills [None]
  - Fatigue [None]
  - Joint swelling [None]
  - Asthenia [None]
  - Pain [None]
  - Arthralgia [None]
